FAERS Safety Report 15805899 (Version 1)
Quarter: 2019Q1

REPORT INFORMATION
  Report Type: Other
  Country: NL (occurrence: NL)
  Receive Date: 20190110
  Receipt Date: 20190110
  Transmission Date: 20190417
  Serious: Yes (Other)
  Sender: FDA-Public Use
  Company Number: NL-APOTEX-2019AP005134

PATIENT
  Age: 32 Year
  Sex: Female
  Weight: 90 kg

DRUGS (3)
  1. HYDROXOCOBALAMIN [Concomitant]
     Active Substance: HYDROXOCOBALAMIN
     Indication: PRODUCT USED FOR UNKNOWN INDICATION
     Dosage: 1 DF, EV 6 WEEKS
     Route: 065
  2. CETIRIZINE [Suspect]
     Active Substance: CETIRIZINE HYDROCHLORIDE
     Indication: URTICARIA
     Dosage: 10 MG, QD
     Route: 065
     Dates: start: 20170316
  3. FOLIC ACID. [Concomitant]
     Active Substance: FOLIC ACID
     Indication: PRODUCT USED FOR UNKNOWN INDICATION
     Dosage: DOSAGE FORM: UNSPECIFIED
     Route: 065

REACTIONS (2)
  - Exposure during pregnancy [Unknown]
  - Abortion spontaneous [Not Recovered/Not Resolved]

NARRATIVE: CASE EVENT DATE: 20170316
